FAERS Safety Report 9923143 (Version 1)
Quarter: 2014Q1

REPORT INFORMATION
  Report Type: Spontaneous
  Country: US (occurrence: US)
  Receive Date: 20140225
  Receipt Date: 20140225
  Transmission Date: 20141002
  Serious: No
  Sender: FDA-Public Use
  Company Number: US-AMGEN-USASP2013069716

PATIENT
  Age: 28 Year
  Sex: Male
  Weight: 122.45 kg

DRUGS (6)
  1. ENBREL [Suspect]
     Indication: PRODUCT USED FOR UNKNOWN INDICATION
     Dosage: 50 MG, QWK
     Route: 058
  2. ADIPEX-P [Concomitant]
     Dosage: 37.5 MG, UNK
     Route: 048
  3. MELOXICAM [Concomitant]
     Dosage: 7.5 MG, UNK
     Route: 048
  4. CIALIS [Concomitant]
     Dosage: UNK
     Route: 048
  5. CLOBETASOL 0.05% [Concomitant]
     Dosage: UNK
  6. MULTIVITAMIN                       /07504101/ [Concomitant]
     Dosage: UNK
     Route: 048

REACTIONS (1)
  - Injection site bruising [Unknown]
